FAERS Safety Report 16565078 (Version 1)
Quarter: 2019Q3

REPORT INFORMATION
  Report Type: Report from Study
  Country: US (occurrence: US)
  Receive Date: 20190712
  Receipt Date: 20190712
  Transmission Date: 20191004
  Serious: Yes (Hospitalization, Other)
  Sender: FDA-Public Use
  Company Number: US-ROCHE-2349522

PATIENT

DRUGS (1)
  1. BEVACIZUMAB. [Suspect]
     Active Substance: BEVACIZUMAB
     Indication: NEOPLASM MALIGNANT
     Route: 065

REACTIONS (7)
  - Colitis [Unknown]
  - Mucosal ulceration [Unknown]
  - Diarrhoea [Unknown]
  - Colitis microscopic [Unknown]
  - Intestinal ischaemia [Unknown]
  - Large intestinal stenosis [Unknown]
  - Large intestine perforation [Unknown]
